FAERS Safety Report 9580985 (Version 1)
Quarter: 2013Q4

REPORT INFORMATION
  Report Type: Spontaneous
  Country: US (occurrence: US)
  Receive Date: 20131002
  Receipt Date: 20131002
  Transmission Date: 20140711
  Serious: No
  Sender: FDA-Public Use
  Company Number: US-PFIZER INC-2013278778

PATIENT
  Age: 36 Year
  Sex: Male
  Weight: 106 kg

DRUGS (9)
  1. NICOTROL INHALER [Suspect]
     Indication: SMOKING CESSATION THERAPY
     Dosage: UNK
  2. CHANTIX [Suspect]
     Indication: SMOKING CESSATION THERAPY
     Dosage: 0.5 MG, DAILY
     Route: 048
     Dates: start: 20130622, end: 2013
  3. CHANTIX [Suspect]
     Dosage: UNK
     Route: 048
     Dates: start: 2013
  4. NICOTINE [Suspect]
     Indication: SMOKING CESSATION THERAPY
     Dosage: UNK
  5. NICOTINE [Suspect]
     Indication: SMOKING CESSATION THERAPY
     Dosage: UNK
  6. NICOTINE [Suspect]
     Indication: SMOKING CESSATION THERAPY
     Dosage: UNK
  7. ANDROGEL [Suspect]
     Indication: BLOOD TESTOSTERONE DECREASED
     Dosage: UNK
     Dates: start: 2013, end: 2013
  8. NICODERM [Suspect]
     Indication: SMOKING CESSATION THERAPY
     Dosage: UNK
  9. NADOLOL [Concomitant]
     Indication: TACHYCARDIA
     Dosage: 20 MG, 2X/DAY

REACTIONS (10)
  - Drug ineffective [Unknown]
  - Depressed mood [Not Recovered/Not Resolved]
  - Thinking abnormal [Not Recovered/Not Resolved]
  - Abnormal behaviour [Not Recovered/Not Resolved]
  - Heart rate increased [Not Recovered/Not Resolved]
  - Abnormal dreams [Not Recovered/Not Resolved]
  - Sleep disorder [Not Recovered/Not Resolved]
  - Agitation [Not Recovered/Not Resolved]
  - Hostility [Not Recovered/Not Resolved]
  - Blood testosterone increased [Unknown]
